FAERS Safety Report 7052639-5 (Version None)
Quarter: 2010Q4

REPORT INFORMATION
  Report Type: 
  Country: None (occurrence: None)
  Receive Date: 20101019
  Receipt Date: 20101011
  Transmission Date: 20110411
  Serious: Yes (Death, Other)
  Sender: FDA-Public Use
  Company Number: US-PFIZER INC-2009250276

PATIENT
  Sex: Male
  Weight: 92.517 kg

DRUGS (10)
  1. REVATIO [Suspect]
     Indication: DYSPNOEA
     Dosage: 20 MG, 3X/DAY
     Dates: start: 20090731
  2. REVATIO [Suspect]
     Indication: PULMONARY HYPERTENSION
  3. LEVOTHYROXINE [Concomitant]
     Dosage: 50 UG, 1X/DAY
  4. ACETYLSALICYLIC ACID [Concomitant]
     Dosage: 81 MG, UNK
  5. OMEPRAZOLE [Concomitant]
     Dosage: UNK
  6. PLAVIX [Concomitant]
     Dosage: UNK
  7. FINASTERIDE [Concomitant]
     Dosage: 5 MG, 1X/DAY
  8. MULTIPLE VITAMINS [Concomitant]
     Dosage: UNK
  9. ALLOPURINOL [Concomitant]
     Dosage: 300 MG, 1X/DAY
  10. ZOMETA [Concomitant]
     Indication: MULTIPLE MYELOMA
     Dosage: UNK, MONTHLY

REACTIONS (2)
  - BLOOD URINE PRESENT [None]
  - DEATH [None]
